FAERS Safety Report 15826563 (Version 9)
Quarter: 2019Q1

REPORT INFORMATION
  Report Type: Spontaneous
  Country: PT (occurrence: PT)
  Receive Date: 20190115
  Receipt Date: 20190327
  Transmission Date: 20190417
  Serious: Yes (Death, Hospitalization, Other)
  Sender: FDA-Public Use
  Company Number: PT-PFIZER INC-2019016672

PATIENT
  Age: 79 Year
  Sex: Male

DRUGS (8)
  1. PERINDOPRIL [Suspect]
     Active Substance: PERINDOPRIL
     Dosage: 8 MG, QD
     Route: 065
  2. APIXABAN [Suspect]
     Active Substance: APIXABAN
     Dosage: 2.5 MG, BID
     Route: 065
  3. METOLAZONE. [Suspect]
     Active Substance: METOLAZONE
     Dosage: 5 MG, QD
     Route: 065
  4. AMLODIPINE BESILATE [Suspect]
     Active Substance: AMLODIPINE BESYLATE
     Dosage: 10 MG, 1X/DAY
     Route: 065
  5. FUROSEMIDE. [Suspect]
     Active Substance: FUROSEMIDE
     Dosage: 40 MG, TID
     Route: 065
  6. RILMENIDINE [Suspect]
     Active Substance: RILMENIDINE
     Dosage: 1 MG, QD
     Route: 065
  7. TRAJENTA [Suspect]
     Active Substance: LINAGLIPTIN
     Dosage: 5 MG, QD
     Route: 065
  8. FLUTICASONE PROPIONATE/SALMETEROL XINAFOATE [Suspect]
     Active Substance: FLUTICASONE PROPIONATE\SALMETEROL XINAFOATE
     Dosage: 250/25 MCG, BID
     Route: 065

REACTIONS (15)
  - Haemoglobin decreased [Unknown]
  - Blood creatine increased [None]
  - Necrotising oesophagitis [Fatal]
  - Pyrexia [Unknown]
  - Generalised oedema [Unknown]
  - Leukocytosis [Unknown]
  - Haematemesis [Unknown]
  - Depressed level of consciousness [Unknown]
  - Septic shock [Unknown]
  - Dyspnoea [Unknown]
  - Tachypnoea [Unknown]
  - Respiratory tract infection [Unknown]
  - Melaena [Unknown]
  - Cardiac failure [Unknown]
  - Hypovolaemic shock [Unknown]
